FAERS Safety Report 7167038-5 (Version None)
Quarter: 2010Q4

REPORT INFORMATION
  Report Type: 
  Country: None (occurrence: None)
  Receive Date: 20101216
  Receipt Date: 20101208
  Transmission Date: 20110411
  Serious: Yes (Hospitalization)
  Sender: FDA-Public Use
  Company Number: B0687924A

PATIENT
  Sex: Female

DRUGS (11)
  1. DERMOVAL [Suspect]
     Indication: FUNGAL SKIN INFECTION
     Route: 061
     Dates: start: 20101005, end: 20101026
  2. LAMISIL [Suspect]
     Indication: FUNGAL SKIN INFECTION
     Dosage: 250MG THREE TIMES PER DAY
     Route: 048
     Dates: start: 20101005, end: 20101026
  3. AMYCOR [Suspect]
     Indication: FUNGAL SKIN INFECTION
     Route: 061
     Dates: start: 20101005, end: 20101026
  4. GLUCOR [Suspect]
     Indication: DIABETES MELLITUS INADEQUATE CONTROL
     Dosage: 100MG TWICE PER DAY
     Route: 048
     Dates: start: 20101020, end: 20101026
  5. VILDAGLIPTIN [Suspect]
     Indication: DIABETES MELLITUS INADEQUATE CONTROL
     Route: 048
     Dates: start: 20101020, end: 20101026
  6. METFORMIN [Suspect]
     Indication: DIABETES MELLITUS INADEQUATE CONTROL
     Dosage: 2TAB PER DAY
     Route: 048
     Dates: start: 20101020, end: 20101026
  7. EZETIMIBE/SIMVASTATIN [Suspect]
     Indication: HYPERCHOLESTEROLAEMIA
     Route: 048
     Dates: start: 20101020, end: 20101026
  8. ROCEPHIN [Suspect]
     Indication: BRONCHOPNEUMONIA
     Route: 030
     Dates: start: 20101020, end: 20101026
  9. CELESTAMINE [Suspect]
     Indication: PRURITUS
     Route: 048
     Dates: start: 20101020, end: 20101026
  10. FUCIDINE [Suspect]
     Indication: PARONYCHIA
     Route: 061
     Dates: start: 20101020, end: 20101026
  11. LEVOTHYROX [Concomitant]
     Indication: HYPERTHYROIDISM
     Route: 048

REACTIONS (9)
  - ACUTE GENERALISED EXANTHEMATOUS PUSTULOSIS [None]
  - ANGIOEDEMA [None]
  - BURNING SENSATION [None]
  - DIABETES MELLITUS INADEQUATE CONTROL [None]
  - HYPERTHERMIA [None]
  - LYMPHADENOPATHY [None]
  - NEUTROPHILIA [None]
  - SKIN EXFOLIATION [None]
  - TACHYCARDIA [None]
